FAERS Safety Report 17113174 (Version 14)
Quarter: 2022Q3

REPORT INFORMATION
  Report Type: Spontaneous
  Country: DE (occurrence: DE)
  Receive Date: 20191204
  Receipt Date: 20220928
  Transmission Date: 20221027
  Serious: Yes (Death, Life-Threatening, Hospitalization, Other)
  Sender: FDA-Public Use
  Company Number: DE-CELLTRION INC.-2019DE027035

PATIENT

DRUGS (43)
  1. RITUXIMAB [Suspect]
     Active Substance: RITUXIMAB
     Indication: Encephalitis
     Dosage: 1 G (BETWEEN 2 AND 3 MONTHS AFTER DISEASE EXACERBATION)
     Route: 065
  2. RITUXIMAB [Suspect]
     Active Substance: RITUXIMAB
     Indication: Plasma cell myeloma
     Dosage: 1 G (4 MONTHS AFTER DISEASE EXACERBATION)
     Route: 065
  3. RITUXIMAB [Suspect]
     Active Substance: RITUXIMAB
     Indication: Encephalitis autoimmune
     Dosage: 1 G (7 MONTHS AFTER DISEASE EXACERBATION)
     Route: 065
  4. RITUXIMAB [Suspect]
     Active Substance: RITUXIMAB
     Indication: Immunosuppression
     Dosage: 1 G (12 MONTHS AFTER DISEASE EXACERBATION)
     Route: 065
  5. RITUXIMAB [Suspect]
     Active Substance: RITUXIMAB
     Indication: Encephalitis
     Dosage: UNK
     Route: 065
  6. RITUXIMAB [Suspect]
     Active Substance: RITUXIMAB
     Dosage: 1 G
     Route: 065
  7. BORTEZOMIB [Suspect]
     Active Substance: BORTEZOMIB
     Indication: Encephalitis
     Dosage: 3 CYCLES OF BORTEZOMIB 11.3 MG/M2
     Route: 065
  8. BORTEZOMIB [Suspect]
     Active Substance: BORTEZOMIB
     Indication: Encephalitis autoimmune
     Dosage: THREE CYCLES AT A DOSE OF 1-1.3 MG/M2
     Route: 065
  9. BORTEZOMIB [Suspect]
     Active Substance: BORTEZOMIB
     Indication: Immunosuppression
     Dosage: THREE CYCLES AT A DOSE OF 1-1.3 MG/M2
     Route: 065
  10. DARATUMUMAB [Suspect]
     Active Substance: DARATUMUMAB
     Indication: Encephalitis
     Dosage: 16 MG/KG INFUSION, FOR A TOTAL OF 13 CYCLES
     Route: 042
  11. DARATUMUMAB [Suspect]
     Active Substance: DARATUMUMAB
     Indication: Encephalitis autoimmune
     Dosage: 16 MG/KG, EVERY 2 WEEKS (REMAINING FIVE CYCLES)
     Route: 041
  12. DARATUMUMAB [Suspect]
     Active Substance: DARATUMUMAB
     Indication: Immunosuppression
     Dosage: 16 MG/KG, 1/WEEK (8 CYCLES)
     Route: 041
  13. DARATUMUMAB [Suspect]
     Active Substance: DARATUMUMAB
     Dosage: REMAINING FIVE CYCLES
     Route: 041
  14. DARATUMUMAB [Suspect]
     Active Substance: DARATUMUMAB
     Dosage: 8 CYCES
     Route: 041
  15. DARATUMUMAB [Suspect]
     Active Substance: DARATUMUMAB
     Dosage: 1-8 CYCLES
     Route: 042
  16. DARATUMUMAB [Suspect]
     Active Substance: DARATUMUMAB
     Dosage: 9-13 CYCLES, EVERY 2 WEEK
     Route: 042
  17. DARATUMUMAB [Suspect]
     Active Substance: DARATUMUMAB
     Indication: Encephalitis autoimmune
     Dosage: 16 MG/KG, 1/WEEK (8 CYCES)
     Route: 042
  18. DARATUMUMAB [Suspect]
     Active Substance: DARATUMUMAB
     Indication: Immunosuppression
     Dosage: 16 MG/KG, Q2WEEKS (REMAINING FIVE CYCLES)
     Route: 042
  19. DARZALEX [Suspect]
     Active Substance: DARATUMUMAB
     Indication: Encephalitis
     Dosage: 1-8 CYCLES
     Route: 042
  20. DARZALEX [Suspect]
     Active Substance: DARATUMUMAB
     Indication: Plasma cell myeloma
     Dosage: 9-13 CYCLES
     Route: 042
  21. DARZALEX [Suspect]
     Active Substance: DARATUMUMAB
     Dosage: UNK
     Route: 065
  22. METHYLPREDNISOLONE [Suspect]
     Active Substance: METHYLPREDNISOLONE
     Indication: Encephalitis
     Dosage: 5X1G
     Route: 065
  23. METHYLPREDNISOLONE [Suspect]
     Active Substance: METHYLPREDNISOLONE
     Indication: Encephalitis autoimmune
     Dosage: 5X500MG
     Route: 065
  24. METHYLPREDNISOLONE [Suspect]
     Active Substance: METHYLPREDNISOLONE
     Indication: Immunosuppression
     Dosage: UNK
     Route: 065
  25. PREDNISOLONE [Suspect]
     Active Substance: PREDNISOLONE
     Indication: Encephalitis
     Dosage: 5 MG, TAPERING FASHION
     Route: 048
  26. PREDNISOLONE [Suspect]
     Active Substance: PREDNISOLONE
     Indication: Encephalitis autoimmune
     Dosage: 5 MG, QD (TAPERING-REGIMEN)
     Route: 048
  27. PREDNISOLONE [Suspect]
     Active Substance: PREDNISOLONE
     Dosage: RECEIVED FOR 2 AND HALF YEARS
     Route: 048
  28. VELCADE [Suspect]
     Active Substance: BORTEZOMIB
     Indication: Encephalitis
     Dosage: 1-1.3 MG/M2
     Route: 065
  29. VELCADE [Suspect]
     Active Substance: BORTEZOMIB
     Dosage: UNK
     Route: 065
  30. PRIVIGEN [Suspect]
     Active Substance: HUMAN IMMUNOGLOBULIN G
     Indication: Encephalitis autoimmune
     Dosage: DOSE: 2G/KG
  31. ACYCLOVIR [Concomitant]
     Active Substance: ACYCLOVIR
     Indication: Infection prophylaxis
     Dosage: 200 MG, QD
     Route: 065
  32. ACYCLOVIR [Concomitant]
     Active Substance: ACYCLOVIR
     Dosage: 200 MILLIGRAM DAILY;
     Route: 065
  33. ACYCLOVIR [Concomitant]
     Active Substance: ACYCLOVIR
     Dosage: 200 MG/DAYS
  34. COTRIMOXAZOLE [Concomitant]
     Active Substance: SULFAMETHOXAZOLE\TRIMETHOPRIM
     Indication: Infection prophylaxis
     Dosage: 2880 MG, EVERY WEEK
  35. COTRIMOXAZOLE [Concomitant]
     Active Substance: SULFAMETHOXAZOLE\TRIMETHOPRIM
     Dosage: 960 MG, THREE TIMES A WEEK
     Route: 065
  36. COTRIMOXAZOLE [Concomitant]
     Active Substance: SULFAMETHOXAZOLE\TRIMETHOPRIM
     Dosage: 960 MG THRICE WEEKLY
     Route: 065
  37. COTRIMOXAZOLE [Concomitant]
     Active Substance: SULFAMETHOXAZOLE\TRIMETHOPRIM
     Dosage: THREE TIMES A WEEK
     Route: 065
  38. COTRIMOXAZOLE [Concomitant]
     Active Substance: SULFAMETHOXAZOLE\TRIMETHOPRIM
     Dosage: THREE TIMES A WEEK
     Route: 065
  39. COTRIMOXAZOLE [Concomitant]
     Active Substance: SULFAMETHOXAZOLE\TRIMETHOPRIM
     Dosage: 960 MG, THREE TIMES A WEEK
  40. HUMAN PLASMA [Concomitant]
     Active Substance: HUMAN PLASMA
     Indication: Encephalitis autoimmune
     Dosage: 12X PLASMA EXCHANGE
     Route: 065
  41. HUMAN PLASMA [Concomitant]
     Active Substance: HUMAN PLASMA
     Dosage: 8X PLASMA EXCHANGE
     Route: 065
  42. HUMAN PLASMA [Concomitant]
     Active Substance: HUMAN PLASMA
     Dosage: 6X PLASMA EXCHANGE
     Route: 065
  43. HUMAN PLASMA [Concomitant]
     Active Substance: HUMAN PLASMA
     Dosage: 25X PLASMA EXCHANGE
     Route: 065

REACTIONS (24)
  - Aggression [Fatal]
  - Condition aggravated [Fatal]
  - Encephalitis autoimmune [Fatal]
  - Cerebellar ataxia [Fatal]
  - Cognitive disorder [Fatal]
  - Neuromyotonia [Fatal]
  - Breathing-related sleep disorder [Fatal]
  - Hand fracture [Fatal]
  - Rebound effect [Fatal]
  - Seizure [Fatal]
  - Septic shock [Fatal]
  - Bacterial infection [Fatal]
  - Cellulitis [Fatal]
  - Infection [Fatal]
  - Septic shock [Fatal]
  - Urinary tract infection [Fatal]
  - Bacterial sepsis [Fatal]
  - Cellulitis [Fatal]
  - Drug ineffective [Fatal]
  - Off label use [Fatal]
  - Product use in unapproved indication [Fatal]
  - Therapeutic response unexpected [Fatal]
  - Off label use [Fatal]
  - Off label use [Fatal]

NARRATIVE: CASE EVENT DATE: 20170101
